FAERS Safety Report 18121111 (Version 2)
Quarter: 2020Q3

REPORT INFORMATION
  Report Type: Report from Study
  Country: JP (occurrence: JP)
  Receive Date: 20200806
  Receipt Date: 20200812
  Transmission Date: 20201103
  Serious: Yes (Hospitalization, Other)
  Sender: FDA-Public Use
  Company Number: JP-PFIZER INC-2020298551

PATIENT
  Age: 69 Year
  Sex: Female

DRUGS (6)
  1. ICLUSIG [Suspect]
     Active Substance: PONATINIB
     Dosage: 15 MG, 1X/DAY (1 DF)
     Route: 048
     Dates: start: 20180313, end: 20200121
  2. ICLUSIG [Suspect]
     Active Substance: PONATINIB
     Indication: ACUTE LYMPHOCYTIC LEUKAEMIA
     Dosage: 30 MG, 1X/DAY
     Route: 048
     Dates: start: 20180122, end: 20180216
  3. MEROPEN [Suspect]
     Active Substance: MEROPENEM
     Indication: SYSTEMIC CANDIDA
     Dosage: UNK
  4. ICLUSIG [Suspect]
     Active Substance: PONATINIB
     Dosage: 15 MG, 1X/DAY
     Route: 048
     Dates: end: 20200204
  5. ICLUSIG [Suspect]
     Active Substance: PONATINIB
     Dosage: 15 MG, 1X/DAY
     Route: 048
     Dates: end: 20200225
  6. RANITIDINE HYDROCHLORIDE. [Concomitant]
     Active Substance: RANITIDINE HYDROCHLORIDE
     Dosage: UNK
     Dates: end: 20180301

REACTIONS (7)
  - Hypertension [Recovering/Resolving]
  - Sinus arrhythmia [Unknown]
  - Hepatic function abnormal [Recovered/Resolved]
  - Systemic candida [Recovered/Resolved]
  - Pyrexia [Recovered/Resolved]
  - Platelet count decreased [Recovering/Resolving]
  - Hypertension [Unknown]

NARRATIVE: CASE EVENT DATE: 20180124
